FAERS Safety Report 25789755 (Version 7)
Quarter: 2025Q4

REPORT INFORMATION
  Report Type: Report from Study
  Country: US (occurrence: US)
  Receive Date: 20250911
  Receipt Date: 20251209
  Transmission Date: 20260118
  Serious: No
  Sender: ACADIA PHARMACEUTICALS
  Company Number: US-ACADIA PHARMACEUTICALS INC.-ACA-2025-TRF-009951

PATIENT
  Sex: Female

DRUGS (3)
  1. DAYBUE [Suspect]
     Active Substance: TROFINETIDE
     Indication: Rett syndrome
     Dosage: 25 MILLILITER, BID
     Route: 048
  2. DAYBUE [Suspect]
     Active Substance: TROFINETIDE
     Dosage: UNK (12.5ML IN THE MORNING AND 25ML IN THE EVENING)
     Route: 048
  3. DAYBUE [Suspect]
     Active Substance: TROFINETIDE
     Dosage: 12.5 MILLILITER, BID
     Route: 048

REACTIONS (18)
  - Crying [Not Recovered/Not Resolved]
  - Constipation [Not Recovered/Not Resolved]
  - Dyspepsia [Not Recovered/Not Resolved]
  - Hyperventilation [Not Recovered/Not Resolved]
  - Retching [Not Recovered/Not Resolved]
  - Drug intolerance [Not Recovered/Not Resolved]
  - Somnolence [Not Recovered/Not Resolved]
  - Irritability [Not Recovered/Not Resolved]
  - Vomiting [Not Recovered/Not Resolved]
  - Condition aggravated [Not Recovered/Not Resolved]
  - Tremor [Unknown]
  - Vision blurred [Unknown]
  - Insomnia [Not Recovered/Not Resolved]
  - Middle insomnia [Unknown]
  - Screaming [Not Recovered/Not Resolved]
  - Intentional dose omission [Not Recovered/Not Resolved]
  - Incorrect dose administered [Not Recovered/Not Resolved]
  - Product use issue [Not Recovered/Not Resolved]
